FAERS Safety Report 10340801 (Version 2)
Quarter: 2014Q3

REPORT INFORMATION
  Report Type: Report from Study
  Country: KR (occurrence: KR)
  Receive Date: 20140724
  Receipt Date: 20140724
  Transmission Date: 20150326
  Serious: Yes (Death, Other)
  Sender: FDA-Public Use
  Company Number: KR-OTSUKA-JP-2014-15935

PATIENT
  Age: 51 Year
  Sex: Male
  Weight: 86 kg

DRUGS (3)
  1. BORTEZOMIB [Suspect]
     Active Substance: BORTEZOMIB
     Indication: PLASMA CELL MYELOMA
     Dosage: Q2.52 MG MILLIGRAM(S), QD
     Route: 042
     Dates: start: 20130925, end: 20131002
  2. MELPHALAN [Suspect]
     Active Substance: MELPHALAN
     Indication: PLASMA CELL MYELOMA
     Dosage: 140 MG/M2, DAILY DOSE
     Route: 042
     Dates: start: 20130929, end: 20130929
  3. BUSULFEX [Suspect]
     Active Substance: BUSULFAN
     Indication: PLASMA CELL MYELOMA
     Dosage: 3.2 MG/KG, QD
     Route: 042
     Dates: start: 20130926, end: 20130928

REACTIONS (2)
  - Hepatitis [Recovering/Resolving]
  - Venous occlusion [Fatal]

NARRATIVE: CASE EVENT DATE: 20131019
